FAERS Safety Report 14377446 (Version 6)
Quarter: 2020Q2

REPORT INFORMATION
  Report Type: Report from Study
  Country: ES (occurrence: ES)
  Receive Date: 20180111
  Receipt Date: 20200408
  Transmission Date: 20200713
  Serious: Yes (Death, Life-Threatening, Hospitalization)
  Sender: FDA-Public Use
  Company Number: ES-EXELIXIS-XL18415005861

PATIENT
  Age: 71 Year
  Sex: Female
  Weight: 65 kg

DRUGS (2)
  1. BLINDED XL184 [Suspect]
     Active Substance: CABOZANTINIB
     Dosage: UNK UNK, QD
     Route: 048
     Dates: start: 20151005, end: 20151202
  2. BLINDED XL184 [Suspect]
     Active Substance: CABOZANTINIB
     Dosage: UNK UNK, QD
     Route: 048
     Dates: start: 20151005, end: 20151202

REACTIONS (2)
  - Skin infection [Not Recovered/Not Resolved]
  - Respiratory tract infection [Fatal]

NARRATIVE: CASE EVENT DATE: 20151202
